FAERS Safety Report 5332603-4 (Version None)
Quarter: 2007Q2

REPORT INFORMATION
  Report Type: 
  Country: None (occurrence: None)
  Receive Date: 20070523
  Receipt Date: 20070509
  Transmission Date: 20071010
  Serious: Yes (Other)
  Sender: FDA-Public Use
  Company Number: SG-ELI_LILLY_AND_COMPANY-SG200602001179

PATIENT
  Age: 10 Year
  Sex: Male
  Weight: 41.5 kg

DRUGS (1)
  1. STRATTERA [Suspect]
     Indication: ATTENTION DEFICIT/HYPERACTIVITY DISORDER
     Dosage: 10 MG, EACH MORNING
     Route: 048
     Dates: start: 20051206

REACTIONS (2)
  - DRY MOUTH [None]
  - YELLOW SKIN [None]
